FAERS Safety Report 8449378-2 (Version None)
Quarter: 2012Q2

REPORT INFORMATION
  Report Type: 
  Country: None (occurrence: None)
  Receive Date: 20120619
  Receipt Date: 20120613
  Transmission Date: 20120825
  Serious: Yes (Hospitalization, Other)
  Sender: FDA-Public Use
  Company Number: BR-ROCHE-1079542

PATIENT
  Sex: Female

DRUGS (7)
  1. XOLAIR [Suspect]
     Indication: ASTHMA
  2. PREDNISONE TAB [Concomitant]
     Indication: ASTHMA
  3. LOSARTAN POTASSIUM [Concomitant]
     Indication: HYPERTENSION
  4. ALENIA (BRAZIL) [Concomitant]
     Indication: ASTHMA
  5. BUDESONIDE [Concomitant]
     Indication: ASTHMA
  6. SINGULAIR [Concomitant]
     Indication: ASTHMA
  7. INSULIN [Concomitant]
     Indication: DIABETES MELLITUS

REACTIONS (5)
  - FATIGUE [None]
  - DYSPNOEA [None]
  - WEIGHT INCREASED [None]
  - PAIN [None]
  - FALL [None]
